FAERS Safety Report 10585289 (Version 1)
Quarter: 2014Q4

REPORT INFORMATION
  Report Type: Spontaneous
  Country: NL (occurrence: None)
  Receive Date: 20141113
  Receipt Date: 20141113
  Transmission Date: 20150529
  Serious: Yes (Hospitalization, Other)
  Sender: FDA-Public Use
  Company Number: NL-ZYDUS-005309

PATIENT
  Age: 42 Year
  Sex: Female

DRUGS (2)
  1. QUETIAPINE (QUETIAPINE) [Suspect]
     Active Substance: QUETIAPINE
  2. DULOXETINE [Suspect]
     Active Substance: DULOXETINE

REACTIONS (13)
  - Suicide attempt [None]
  - Cogwheel rigidity [None]
  - Bradykinesia [None]
  - Ventricular fibrillation [None]
  - Hyperkalaemia [None]
  - Depressed level of consciousness [None]
  - Electrocardiogram T wave peaked [None]
  - Overdose [None]
  - Electrocardiogram QRS complex prolonged [None]
  - Neuroleptic malignant syndrome [None]
  - Depression [None]
  - General physical health deterioration [None]
  - Toxicity to various agents [None]
